FAERS Safety Report 7435505-2 (Version None)
Quarter: 2011Q2

REPORT INFORMATION
  Report Type: 
  Country: None (occurrence: None)
  Receive Date: 20110418
  Receipt Date: 20110406
  Transmission Date: 20111010
  Serious: Yes (Hospitalization, Disabling)
  Sender: FDA-Public Use
  Company Number: 1-21201161

PATIENT
  Age: 25 Year
  Sex: Female
  Weight: 61.2356 kg

DRUGS (1)
  1. CARBAMAZEPINE [Suspect]
     Dosage: 200MG QAM; 400MG QPM, ORAL
     Route: 048
     Dates: start: 20071207, end: 20071217

REACTIONS (36)
  - DEFORMITY [None]
  - ANHEDONIA [None]
  - STEVENS-JOHNSON SYNDROME [None]
  - BLOOD GLUCOSE INCREASED [None]
  - BLOOD IRON DECREASED [None]
  - BRONCHITIS [None]
  - BLOOD ALBUMIN DECREASED [None]
  - EMOTIONAL DISTRESS [None]
  - CONJUNCTIVITIS [None]
  - HYPOKALAEMIA [None]
  - IRON BINDING CAPACITY TOTAL DECREASED [None]
  - LYMPHOCYTE PERCENTAGE INCREASED [None]
  - MULTIPLE INJURIES [None]
  - PAIN [None]
  - ANXIETY [None]
  - ERYTHEMA MULTIFORME [None]
  - ALANINE AMINOTRANSFERASE INCREASED [None]
  - MICROCYTIC ANAEMIA [None]
  - BLOOD PHOSPHORUS INCREASED [None]
  - DIZZINESS [None]
  - ASPARTATE AMINOTRANSFERASE INCREASED [None]
  - EPISCLERITIS [None]
  - ADENOVIRAL UPPER RESPIRATORY INFECTION [None]
  - OROPHARYNGEAL PAIN [None]
  - PYREXIA [None]
  - COUGH [None]
  - BLOOD SODIUM DECREASED [None]
  - URINARY TRACT INFECTION [None]
  - MONOCYTE PERCENTAGE INCREASED [None]
  - MUCOSAL INFLAMMATION [None]
  - PROTEIN TOTAL DECREASED [None]
  - PHARYNGITIS STREPTOCOCCAL [None]
  - MENTAL DISORDER [None]
  - DRUG HYPERSENSITIVITY [None]
  - WHEEZING [None]
  - GRANULOCYTE COUNT DECREASED [None]
